FAERS Safety Report 24586985 (Version 2)
Quarter: 2024Q4

REPORT INFORMATION
  Report Type: Spontaneous
  Country: JP (occurrence: JP)
  Receive Date: 20241107
  Receipt Date: 20241215
  Transmission Date: 20250114
  Serious: Yes (Hospitalization, Disabling, Other)
  Sender: TAKEDA
  Company Number: JP-TAKEDA-2024TJP015950

PATIENT
  Age: 35 Year
  Sex: Male
  Weight: 58 kg

DRUGS (2)
  1. ENTYVIO [Suspect]
     Active Substance: VEDOLIZUMAB
     Indication: Colitis ulcerative
     Dosage: 300 MILLIGRAM, Q8WEEKS
     Dates: start: 20221115
  2. LIALDA [Concomitant]
     Active Substance: MESALAMINE
     Dosage: 1200 MILLIGRAM

REACTIONS (1)
  - Colon cancer [Recovering/Resolving]

NARRATIVE: CASE EVENT DATE: 20240525
